FAERS Safety Report 22527934 (Version 2)
Quarter: 2023Q2

REPORT INFORMATION
  Report Type: Spontaneous
  Country: IT (occurrence: IT)
  Receive Date: 20230606
  Receipt Date: 20230614
  Transmission Date: 20230722
  Serious: Yes (Life-Threatening, Other)
  Sender: FDA-Public Use
  Company Number: None

PATIENT
  Age: 56 Year
  Sex: Female

DRUGS (1)
  1. FINGOLIMOD HYDROCHLORIDE [Suspect]
     Active Substance: FINGOLIMOD HYDROCHLORIDE
     Indication: Relapsing-remitting multiple sclerosis
     Dosage: 0.5 MG, QD (0.5 MG 1CP DIE)
     Route: 048
     Dates: start: 20220214, end: 202303

REACTIONS (1)
  - Neoplasm recurrence [Not Recovered/Not Resolved]

NARRATIVE: CASE EVENT DATE: 20230301
